FAERS Safety Report 10615659 (Version 1)
Quarter: 2014Q4

REPORT INFORMATION
  Report Type: Spontaneous
  Country: CH (occurrence: CH)
  Receive Date: 20141201
  Receipt Date: 20141201
  Transmission Date: 20150529
  Serious: Yes (Other)
  Sender: FDA-Public Use
  Company Number: CH-SA-2014SA161252

PATIENT
  Age: 34 Year
  Sex: Female

DRUGS (8)
  1. PARACETAMOL [Concomitant]
     Active Substance: ACETAMINOPHEN
  2. GARCINIA CAMBOGIA [Concomitant]
     Active Substance: HYDROXYCITRIC ACID
     Dates: start: 20140525, end: 20140825
  3. NEOCITRAN UNKNOWN [Suspect]
     Active Substance: ACETAMINOPHEN\CHLORPHENIRAMINE\DEXTROMETHORPHAN HYDROBROMIDE\PSEUDOEPHEDRINE
     Route: 064
     Dates: start: 20140827, end: 20140830
  4. BENZAC AC [Suspect]
     Active Substance: BENZOYL PEROXIDE
     Dosage: FREQUENCY: AS NECESSARY
     Route: 064
  5. ASPEGIC [Suspect]
     Active Substance: ASPIRIN DL-LYSINE
     Dosage: FORM:POWDERS,MEDICINAL/PHARMACEUTICAL SOLID SUBSTANCES
     Route: 064
     Dates: start: 20140823, end: 20140823
  6. STILNOX [Suspect]
     Active Substance: ZOLPIDEM TARTRATE
     Route: 064
     Dates: start: 20140829, end: 20140829
  7. DALACIN T [Concomitant]
     Active Substance: CLINDAMYCIN PHOSPHATE
  8. DUSPATALIN [Concomitant]
     Active Substance: MEBEVERINE HYDROCHLORIDE
     Dates: start: 20140827, end: 20140901

REACTIONS (2)
  - No adverse event [None]
  - Exposure during pregnancy [Unknown]

NARRATIVE: CASE EVENT DATE: 20140823
